FAERS Safety Report 6421678-7 (Version None)
Quarter: 2009Q4

REPORT INFORMATION
  Report Type: 
  Country: None (occurrence: None)
  Receive Date: 20091030
  Receipt Date: 20091019
  Transmission Date: 20100525
  Serious: Yes (Hospitalization)
  Sender: FDA-Public Use
  Company Number: BR-ELI_LILLY_AND_COMPANY-BR200910004616

PATIENT
  Sex: Female
  Weight: 85 kg

DRUGS (8)
  1. BYETTA [Suspect]
     Indication: DIABETES MELLITUS
     Dosage: 5 UG, 2/D
     Route: 058
     Dates: start: 20090912
  2. GLIFAGE [Concomitant]
     Indication: DIABETES MELLITUS
     Dosage: 1700 MG, DAILY (1/D)
     Route: 048
  3. GLYBURIDE [Concomitant]
     Indication: DIABETES MELLITUS
     Dosage: UNK, DAILY (1/D)
     Route: 065
  4. HUMULIN N [Concomitant]
     Indication: DIABETES MELLITUS
     Dosage: 30 U, DAILY (1/D)
     Route: 058
  5. MONOCORDIL [Concomitant]
     Indication: ANGINA PECTORIS
     Dosage: 40 MG, 2/D
     Route: 048
  6. ATENOLOL [Concomitant]
     Indication: HYPERTENSION
     Dosage: 50 MG, DAILY (1/D)
     Route: 048
  7. DIOVAN [Concomitant]
     Indication: HYPERTENSION
     Dosage: 80 MG, EACH MORNING
     Route: 048
  8. PANTOPRAZOL [Concomitant]
     Indication: GASTRIC DISORDER
     Dosage: 40 MG, DAILY (1/D)
     Route: 065

REACTIONS (5)
  - ABDOMINAL PAIN UPPER [None]
  - HYPERGLYCAEMIA [None]
  - HYPERTENSION [None]
  - NAUSEA [None]
  - OFF LABEL USE [None]
